FAERS Safety Report 15076925 (Version 1)
Quarter: 2018Q2

REPORT INFORMATION
  Report Type: Spontaneous
  Country: NL (occurrence: NL)
  Receive Date: 20180627
  Receipt Date: 20180627
  Transmission Date: 20180711
  Serious: Yes (Hospitalization)
  Sender: FDA-Public Use
  Company Number: NL-NOVOPROD-606859

PATIENT
  Age: 44 Year
  Sex: Female

DRUGS (1)
  1. NOVORAPID [Suspect]
     Active Substance: INSULIN ASPART
     Indication: DIABETES MELLITUS
     Dosage: 50 IU, QD
     Route: 058

REACTIONS (2)
  - Diabetic ketoacidosis [Recovering/Resolving]
  - Product leakage [Unknown]

NARRATIVE: CASE EVENT DATE: 20180615
